FAERS Safety Report 8071310-4 (Version None)
Quarter: 2012Q1

REPORT INFORMATION
  Report Type: 
  Country: None (occurrence: None)
  Receive Date: 20120125
  Receipt Date: 20120120
  Transmission Date: 20120608
  Serious: Yes (Other)
  Sender: FDA-Public Use
  Company Number: US-JNJFOC-20120109557

PATIENT
  Sex: Female
  Weight: 81.65 kg

DRUGS (5)
  1. EPINEPHRINE [Concomitant]
     Indication: ALLERGY TO ARTHROPOD STING
     Route: 058
  2. SYNTHROID [Concomitant]
     Indication: THYROID DISORDER
     Route: 048
     Dates: start: 19920101
  3. PERCOCET [Concomitant]
     Indication: BREAKTHROUGH PAIN
     Route: 048
  4. FENTANYL-100 [Suspect]
     Indication: FIBROMYALGIA
     Route: 062
     Dates: start: 20050101, end: 20090101
  5. FENTANYL-100 [Suspect]
     Indication: ARTHRITIS
     Route: 062
     Dates: start: 20050101, end: 20090101

REACTIONS (6)
  - BONE FRAGMENTATION [None]
  - INSOMNIA [None]
  - WRONG TECHNIQUE IN DRUG USAGE PROCESS [None]
  - APPLICATION SITE VESICLES [None]
  - LYME DISEASE [None]
  - PRODUCT ADHESION ISSUE [None]
